FAERS Safety Report 23348095 (Version 1)
Quarter: 2023Q4

REPORT INFORMATION
  Report Type: Spontaneous
  Country: HR (occurrence: HR)
  Receive Date: 20231228
  Receipt Date: 20231228
  Transmission Date: 20240109
  Serious: Yes (Other)
  Sender: FDA-Public Use
  Company Number: None

PATIENT
  Age: 16 Year
  Sex: Male

DRUGS (3)
  1. IBUPROFEN [Suspect]
     Active Substance: IBUPROFEN
     Indication: Product used for unknown indication
     Dosage: 8000 MILLIGRAM, QD (8G OF IBUPROFEN)
     Route: 048
     Dates: start: 20231029, end: 20231029
  2. DIOSMIN\HESPERIDIN [Suspect]
     Active Substance: DIOSMIN\HESPERIDIN
     Indication: Product used for unknown indication
     Dosage: 1 DF, QD (12 TABLETS: 5400 MG DIOSMIN AND 600 MG HESPERIDIN)
     Route: 048
     Dates: start: 20231029, end: 20231029
  3. NORMABEL [Suspect]
     Active Substance: DIAZEPAM
     Indication: Product used for unknown indication
     Dosage: 600 MILLIGRAM, QD (10 TABLETS)
     Route: 048
     Dates: start: 20231029, end: 20231029

REACTIONS (3)
  - Suicide attempt [Unknown]
  - Intentional overdose [Unknown]
  - No adverse event [Unknown]

NARRATIVE: CASE EVENT DATE: 20231029
